FAERS Safety Report 5319725-9 (Version None)
Quarter: 2007Q2

REPORT INFORMATION
  Report Type: 
  Country: None (occurrence: None)
  Receive Date: 20070502
  Receipt Date: 20070418
  Transmission Date: 20071010
  Serious: Yes (Other)
  Sender: FDA-Public Use
  Company Number: B0465290A

PATIENT
  Age: 60 Year
  Sex: Female

DRUGS (6)
  1. LITHIUM SALT (FORMULATION UNKNOWN) (GENERIC) (LITHIUM SALT) [Suspect]
     Indication: SCHIZOAFFECTIVE DISORDER
  2. RISPERIDONE [Suspect]
     Indication: SCHIZOAFFECTIVE DISORDER
  3. HALOPERIDOL [Suspect]
     Dosage: 10 MG / PER DAY
  4. CLOZAPINE [Suspect]
  5. OLANZAPINE [Suspect]
     Dosage: 5 MG
  6. QUETIAPINE FUMARATE [Suspect]
     Dosage: 200 MG

REACTIONS (14)
  - AKATHISIA [None]
  - ANXIETY [None]
  - CEREBRAL ATROPHY [None]
  - DEPRESSION [None]
  - DRUG INTERACTION [None]
  - ECHOLALIA [None]
  - ENCEPHALOPATHY [None]
  - GAIT DISTURBANCE [None]
  - NEUROLEPTIC MALIGNANT SYNDROME [None]
  - NEUROTOXICITY [None]
  - PARANOIA [None]
  - PSYCHOTIC DISORDER [None]
  - SUICIDAL IDEATION [None]
  - SUICIDE ATTEMPT [None]
